FAERS Safety Report 12631171 (Version 2)
Quarter: 2016Q3

REPORT INFORMATION
  Report Type: Spontaneous
  Country: US (occurrence: US)
  Receive Date: 20160808
  Receipt Date: 20160808
  Transmission Date: 20161109
  Serious: No
  Sender: FDA-Public Use
  Company Number: US-BEH-2015052563

PATIENT
  Sex: Female
  Weight: 78 kg

DRUGS (17)
  1. SAVELLA [Concomitant]
     Active Substance: MILNACIPRAN HYDROCHLORIDE
  2. PRIVIGEN [Concomitant]
     Active Substance: HUMAN IMMUNOGLOBULIN G
  3. SYNTHROID [Concomitant]
     Active Substance: LEVOTHYROXINE SODIUM
  4. IMITREX [Concomitant]
     Active Substance: SUMATRIPTAN SUCCINATE
  5. EPIPEN [Concomitant]
     Active Substance: EPINEPHRINE
     Indication: ANAPHYLACTIC REACTION
  6. ADDERALL [Concomitant]
     Active Substance: AMPHETAMINE ASPARTATE\AMPHETAMINE SULFATE\DEXTROAMPHETAMINE SACCHARATE\DEXTROAMPHETAMINE SULFATE
  7. ATIVAN [Concomitant]
     Active Substance: LORAZEPAM
  8. DIPHENHYDRAMINE. [Concomitant]
     Active Substance: DIPHENHYDRAMINE
  9. HIZENTRA [Suspect]
     Active Substance: HUMAN IMMUNOGLOBULIN G
     Indication: HYPOGAMMAGLOBULINAEMIA
     Route: 058
  10. ACETAMINOPHEN. [Concomitant]
     Active Substance: ACETAMINOPHEN
  11. LMX [Concomitant]
     Active Substance: LIDOCAINE
  12. PROMETHAZINE [Concomitant]
     Active Substance: PROMETHAZINE\PROMETHAZINE HYDROCHLORIDE
  13. CULTIVATE CREAM [Concomitant]
  14. BACLOFEN. [Concomitant]
     Active Substance: BACLOFEN
  15. ORAMORPHINE SR [Concomitant]
  16. LYRICA [Concomitant]
     Active Substance: PREGABALIN
  17. PROVIGIL [Concomitant]
     Active Substance: MODAFINIL

REACTIONS (5)
  - Vomiting [Unknown]
  - Flushing [Unknown]
  - Headache [Unknown]
  - Nausea [Unknown]
  - Rash [Unknown]
